FAERS Safety Report 15221621 (Version 1)
Quarter: 2018Q3

REPORT INFORMATION
  Report Type: Spontaneous
  Country: JP (occurrence: JP)
  Receive Date: 20180731
  Receipt Date: 20180731
  Transmission Date: 20181010
  Serious: Yes (Other)
  Sender: FDA-Public Use
  Company Number: JP-PFIZER INC-2018301975

PATIENT
  Age: 64 Year
  Sex: Male

DRUGS (4)
  1. LENTINAN [Concomitant]
     Active Substance: LENTINAN
     Indication: GASTRIC CANCER STAGE II
     Dosage: UNK, CYCLIC
     Dates: start: 2010
  2. PACLITAXEL. [Suspect]
     Active Substance: PACLITAXEL
     Indication: GASTRIC CANCER STAGE II
     Dosage: UNK, CYCLIC (6 CYCLES)
     Dates: start: 2010, end: 201104
  3. CISPLATIN. [Suspect]
     Active Substance: CISPLATIN
     Indication: GASTRIC CANCER STAGE II
     Dosage: UNK, CYCLIC (6 CYCLES)
     Dates: start: 2010, end: 201104
  4. TS?1 [Suspect]
     Active Substance: GIMERACIL\OTERACIL\TEGAFUR
     Indication: GASTRIC CANCER STAGE II
     Dosage: UNK, CYCLIC
     Dates: start: 2010

REACTIONS (1)
  - Skin disorder [Unknown]
